FAERS Safety Report 19676911 (Version 2)
Quarter: 2021Q3

REPORT INFORMATION
  Report Type: Spontaneous
  Country: US (occurrence: US)
  Receive Date: 20210809
  Receipt Date: 20210920
  Transmission Date: 20211014
  Serious: No
  Sender: FDA-Public Use
  Company Number: US-AMGEN-USASP2021118999

PATIENT
  Age: 38 Year
  Sex: Male

DRUGS (6)
  1. DESONIDE. [Concomitant]
     Active Substance: DESONIDE
     Dosage: UNK
  2. UREA. [Concomitant]
     Active Substance: UREA
     Dosage: UNK
  3. EUCRISA [Concomitant]
     Active Substance: CRISABOROLE
     Dosage: UNK
  4. BETAMETH DIPROPIONATE [Concomitant]
     Dosage: UNK
  5. OTEZLA [Suspect]
     Active Substance: APREMILAST
     Indication: PSORIASIS
     Dosage: 30 MILLIGRAM, BID
     Route: 048
     Dates: start: 20210430
  6. CLOBETASOL [Concomitant]
     Active Substance: CLOBETASOL
     Dosage: UNK

REACTIONS (7)
  - Product dose omission issue [Not Recovered/Not Resolved]
  - Therapy non-responder [Not Recovered/Not Resolved]
  - Diarrhoea [Not Recovered/Not Resolved]
  - Psoriasis [Not Recovered/Not Resolved]
  - Headache [Not Recovered/Not Resolved]
  - Dyspnoea [Not Recovered/Not Resolved]
  - Chest discomfort [Not Recovered/Not Resolved]

NARRATIVE: CASE EVENT DATE: 2021
